FAERS Safety Report 10121025 (Version 1)
Quarter: 2014Q2

REPORT INFORMATION
  Report Type: Spontaneous
  Country: US (occurrence: US)
  Receive Date: 20140425
  Receipt Date: 20140425
  Transmission Date: 20141212
  Serious: Yes (Death, Other)
  Sender: FDA-Public Use
  Company Number: PHEH2014US008123

PATIENT
  Sex: 0

DRUGS (1)
  1. GILENYA [Suspect]
     Dosage: MATERNAL DOSE: 0.5MG/QD
     Route: 064

REACTIONS (2)
  - Turner^s syndrome [Fatal]
  - Foetal exposure during pregnancy [Unknown]
